FAERS Safety Report 9123983 (Version 3)
Quarter: 2013Q1

REPORT INFORMATION
  Report Type: Spontaneous
  Country: BR (occurrence: BR)
  Receive Date: 20130227
  Receipt Date: 20130326
  Transmission Date: 20140127
  Serious: Yes (Hospitalization, Other)
  Sender: FDA-Public Use
  Company Number: BR-JNJFOC-20130212620

PATIENT
  Age: 31 Year
  Sex: Female
  Weight: 94.7 kg

DRUGS (1)
  1. EVRA [Suspect]
     Indication: CONTRACEPTION
     Dosage: 5 YEARS AGO
     Route: 062
     Dates: start: 2007, end: 201211

REACTIONS (7)
  - Fall [Recovered/Resolved]
  - Rib fracture [Not Recovered/Not Resolved]
  - Spinal fracture [Unknown]
  - Exposure during pregnancy [Unknown]
  - Pregnancy with contraceptive patch [Not Recovered/Not Resolved]
  - Back pain [Not Recovered/Not Resolved]
  - Mobility decreased [Unknown]
